FAERS Safety Report 9169309 (Version 1)
Quarter: 2013Q1

REPORT INFORMATION
  Report Type: Spontaneous
  Country: IT (occurrence: IT)
  Receive Date: 20130318
  Receipt Date: 20130318
  Transmission Date: 20140127
  Serious: Yes (Disabling, Other)
  Sender: FDA-Public Use
  Company Number: IT-BRISTOL-MYERS SQUIBB COMPANY-18595728

PATIENT
  Age: 45 Year
  Sex: Female
  Weight: 57 kg

DRUGS (7)
  1. LYSODREN [Suspect]
     Indication: ADRENAL GLAND CANCER
     Dosage: AGAIN ON 14FB13
     Route: 048
     Dates: start: 20110704
  2. HYDROCORTISONE [Concomitant]
  3. EUTIROX [Concomitant]
  4. FLORINEF [Concomitant]
     Dosage: HALF TAB
  5. NEXIUM [Concomitant]
  6. TORVAST [Concomitant]
  7. SEREUPIN [Concomitant]

REACTIONS (9)
  - Asthenia [Recovered/Resolved]
  - Nausea [Not Recovered/Not Resolved]
  - Vomiting [Not Recovered/Not Resolved]
  - Confusional state [Recovered/Resolved]
  - Dizziness [Recovered/Resolved]
  - Adrenal gland cancer metastatic [None]
  - Chemotherapeutic drug level above therapeutic [None]
  - Pulmonary mass [None]
  - Uterine enlargement [None]
